FAERS Safety Report 6379375-2 (Version None)
Quarter: 2009Q3

REPORT INFORMATION
  Report Type: 
  Country: None (occurrence: None)
  Receive Date: 20090928
  Receipt Date: 20090917
  Transmission Date: 20100115
  Serious: Yes (Other)
  Sender: FDA-Public Use
  Company Number: US-ASTRAZENECA-2009SE14085

PATIENT
  Age: 29 Year
  Sex: Male

DRUGS (6)
  1. ARIMIDEX [Suspect]
     Indication: BLOOD TESTOSTERONE DECREASED
     Route: 048
     Dates: start: 20090501, end: 20090801
  2. ARIMIDEX [Suspect]
     Indication: NIPPLE PAIN
     Route: 048
     Dates: start: 20090501, end: 20090801
  3. SEROQUEL [Concomitant]
     Indication: SLEEP DISORDER
     Dates: start: 20080101, end: 20080101
  4. METHADONE [Concomitant]
     Indication: BACK PAIN
  5. DEMEROL [Concomitant]
     Indication: BACK PAIN
  6. VALIUM [Concomitant]

REACTIONS (6)
  - AMNESIA [None]
  - APHASIA [None]
  - DISORIENTATION [None]
  - ERECTILE DYSFUNCTION [None]
  - LIBIDO DECREASED [None]
  - SLEEP DISORDER [None]
